FAERS Safety Report 7725752-4 (Version None)
Quarter: 2011Q3

REPORT INFORMATION
  Report Type: 
  Country: None (occurrence: None)
  Receive Date: 20110902
  Receipt Date: 20110829
  Transmission Date: 20111222
  Serious: Yes (Hospitalization)
  Sender: FDA-Public Use
  Company Number: FR-SANOFI-AVENTIS-2011SA055204

PATIENT
  Age: 88 Year
  Sex: Female

DRUGS (13)
  1. FUROSEMIDE [Suspect]
     Route: 048
     Dates: start: 20110407
  2. ASPIRIN [Concomitant]
  3. ORAMORPH SR [Concomitant]
  4. BISOPROLOL FUMARATE [Suspect]
     Route: 048
     Dates: start: 20110404, end: 20110722
  5. ESOMEPRAZOLE SODIUM [Concomitant]
  6. POTASSIUM CHLORIDE [Concomitant]
     Dates: end: 20110404
  7. ACETAMINOPHEN [Concomitant]
  8. HYZAAR [Concomitant]
  9. CALCIPARINE [Concomitant]
  10. FORLAX [Concomitant]
  11. FUROSEMIDE [Suspect]
     Route: 048
     Dates: start: 20110404, end: 20110406
  12. VALSARTAN [Suspect]
     Route: 048
     Dates: start: 20110404
  13. POTASSIUM CHLORIDE [Concomitant]
     Route: 048
     Dates: start: 20110405

REACTIONS (1)
  - DERMATITIS PSORIASIFORM [None]
